FAERS Safety Report 14593259 (Version 3)
Quarter: 2019Q4

REPORT INFORMATION
  Report Type: Report from Study
  Country: DE (occurrence: DE)
  Receive Date: 20180302
  Receipt Date: 20191021
  Transmission Date: 20200122
  Serious: Yes (Other)
  Sender: FDA-Public Use
  Company Number: DE-BRISTOL-MYERS SQUIBB COMPANY-BMS-2018-018752

PATIENT
  Age: 79 Year
  Sex: Female
  Weight: 91 kg

DRUGS (1)
  1. APIXABAN [Suspect]
     Active Substance: APIXABAN
     Indication: EMBOLISM VENOUS
     Dosage: 5 MILLIGRAM, BID
     Route: 048
     Dates: start: 20161124

REACTIONS (4)
  - Cardiac failure [Unknown]
  - Anaemia [Unknown]
  - Prescribed underdose [Unknown]
  - Hypertension [Unknown]

NARRATIVE: CASE EVENT DATE: 20171123
